FAERS Safety Report 21484663 (Version 1)
Quarter: 2022Q4

REPORT INFORMATION
  Report Type: Spontaneous
  Country: US (occurrence: None)
  Receive Date: 20221019
  Receipt Date: 20221019
  Transmission Date: 20230113
  Serious: Yes (Death)
  Sender: FDA-Public Use
  Company Number: None

PATIENT
  Age: 53 Year
  Sex: Female

DRUGS (1)
  1. HYCAMTIN [Suspect]
     Active Substance: TOPOTECAN HYDROCHLORIDE
     Dosage: FREQUENCY : DAILY;?
     Route: 048
     Dates: start: 20220824, end: 20220927

REACTIONS (1)
  - Death [None]

NARRATIVE: CASE EVENT DATE: 20220927
